FAERS Safety Report 9581997 (Version 1)
Quarter: 2013Q4

REPORT INFORMATION
  Report Type: Spontaneous
  Country: US (occurrence: US)
  Receive Date: 20131002
  Receipt Date: 20131002
  Transmission Date: 20140711
  Serious: No
  Sender: FDA-Public Use
  Company Number: US-009507513-1309USA011136

PATIENT
  Age: 79 Year
  Sex: Female

DRUGS (2)
  1. NASONEX [Suspect]
     Dosage: ^SEVERAL YEARS AGO^
     Route: 045
  2. NASONEX [Suspect]
     Dosage: UNK, BID
     Route: 045

REACTIONS (3)
  - Drug withdrawal syndrome [Not Recovered/Not Resolved]
  - Nasal disorder [Not Recovered/Not Resolved]
  - Drug ineffective [Unknown]
